FAERS Safety Report 24130945 (Version 1)
Quarter: 2024Q3

REPORT INFORMATION
  Report Type: Spontaneous
  Country: FR (occurrence: FR)
  Receive Date: 20240724
  Receipt Date: 20240724
  Transmission Date: 20241016
  Serious: Yes (Hospitalization)
  Sender: CHEPLAPHARM
  Company Number: None

PATIENT
  Age: 93 Year
  Sex: Female
  Weight: 54.799 kg

DRUGS (12)
  1. OLANZAPINE [Suspect]
     Active Substance: OLANZAPINE
     Indication: Product used for unknown indication
     Route: 048
     Dates: end: 20240111
  2. MIRTAZAPINE [Suspect]
     Active Substance: MIRTAZAPINE
     Indication: Product used for unknown indication
     Dosage: LONG-TERM ?DAILY DOSE: 30 MILLIGRAM
     Route: 048
     Dates: start: 20240108
  3. MIRTAZAPINE [Suspect]
     Active Substance: MIRTAZAPINE
     Indication: Product used for unknown indication
     Dosage: DAILY DOSE: 15 MILLIGRAM
     Route: 048
     Dates: end: 20240108
  4. HALDOL [Suspect]
     Active Substance: HALOPERIDOL
     Indication: Product used for unknown indication
     Dosage: DAILY DOSE: 120 MILLIGRAM
     Route: 048
     Dates: end: 20240111
  5. HALDOL [Suspect]
     Active Substance: HALOPERIDOL
     Indication: Product used for unknown indication
     Dosage: DAILY DOSE: 60 MILLIGRAM
     Route: 048
  6. CEFTRIAXONE SODIUM [Suspect]
     Active Substance: CEFTRIAXONE SODIUM
     Indication: Product used for unknown indication
     Dosage: DAILY DOSE: 1 GRAM
     Route: 042
     Dates: start: 20240108, end: 20240111
  7. LEVOTHYROXINE [Suspect]
     Active Substance: LEVOTHYROXINE\LEVOTHYROXINE SODIUM
     Dosage: STRENGTH: 25 UG?DAILY DOSE: 0.5 DOSAGE FORM
     Route: 048
  8. LEVOTHYROXINE [Suspect]
     Active Substance: LEVOTHYROXINE\LEVOTHYROXINE SODIUM
     Dosage: STRENGTH: 50 UG?DAILY DOSE: 0.5 DOSAGE FORM
     Route: 048
  9. TRIHEXYPHENIDYL [Suspect]
     Active Substance: TRIHEXYPHENIDYL
  10. CHOLECALCIFEROL [Suspect]
     Active Substance: CHOLECALCIFEROL
     Route: 048
  11. REFRESH CLASSIC [Suspect]
     Active Substance: POLYVINYL ALCOHOL\POVIDONE
     Dosage: OPHTHALMIC, 3/D?DAILY DOSE: 0.12 MILLILITRE
     Route: 047
  12. OXAZEPAM [Suspect]
     Active Substance: OXAZEPAM
     Route: 048

REACTIONS (3)
  - Anaemia [Recovering/Resolving]
  - Neutropenia [Recovered/Resolved]
  - Thrombocytopenia [Recovering/Resolving]

NARRATIVE: CASE EVENT DATE: 20240111
